FAERS Safety Report 9133525 (Version 1)
Quarter: 2013Q1

REPORT INFORMATION
  Report Type: Spontaneous
  Country: US (occurrence: US)
  Receive Date: 20130124
  Receipt Date: 20130124
  Transmission Date: 20140127
  Serious: Yes (Other)
  Sender: FDA-Public Use
  Company Number: US-BRACCO-008496

PATIENT
  Age: 27 Year
  Sex: Female
  Weight: 92 kg

DRUGS (3)
  1. MULTIHANCE [Suspect]
     Indication: HEPATIC LESION
     Route: 042
     Dates: start: 20120824, end: 20120824
  2. MULTIHANCE [Suspect]
     Indication: LIVER SCAN
     Route: 042
     Dates: start: 20120824, end: 20120824
  3. XANAX [Concomitant]
     Indication: CLAUSTROPHOBIA
     Dates: start: 20120824, end: 20120824

REACTIONS (1)
  - Hypersensitivity [Recovered/Resolved]
